FAERS Safety Report 20150650 (Version 1)
Quarter: 2021Q4

REPORT INFORMATION
  Report Type: Spontaneous
  Country: CN (occurrence: CN)
  Receive Date: 20211206
  Receipt Date: 20211206
  Transmission Date: 20220303
  Serious: Yes (Other)
  Sender: FDA-Public Use
  Company Number: CN-ABBVIE-21K-035-4185996-00

PATIENT
  Age: 34 Year
  Sex: Male
  Weight: 68 kg

DRUGS (4)
  1. VALPROATE SODIUM [Suspect]
     Active Substance: VALPROATE SODIUM
     Indication: Toxicity to various agents
     Route: 048
     Dates: start: 20211111, end: 20211113
  2. VALPROATE SODIUM [Suspect]
     Active Substance: VALPROATE SODIUM
     Route: 048
     Dates: start: 20211113, end: 20211115
  3. CARBAMAZEPINE [Suspect]
     Active Substance: CARBAMAZEPINE
     Indication: Toxicity to various agents
     Route: 048
     Dates: start: 20211111, end: 20211113
  4. CARBAMAZEPINE [Suspect]
     Active Substance: CARBAMAZEPINE
     Route: 048
     Dates: start: 20211113, end: 20211115

REACTIONS (2)
  - Renal impairment [Recovered/Resolved]
  - Hepatic function abnormal [Recovered/Resolved]

NARRATIVE: CASE EVENT DATE: 20211113
